FAERS Safety Report 10051130 (Version 2)
Quarter: 2014Q2

REPORT INFORMATION
  Report Type: Spontaneous
  Country: US (occurrence: US)
  Receive Date: 20140401
  Receipt Date: 20140401
  Transmission Date: 20141212
  Serious: No
  Sender: FDA-Public Use
  Company Number: US-ASTRAZENECA-2006UW26306

PATIENT
  Age: 88 Year
  Sex: Male
  Weight: 75.7 kg

DRUGS (7)
  1. NEXIUM [Suspect]
     Indication: GASTROOESOPHAGEAL REFLUX DISEASE
     Route: 048
     Dates: start: 2003
  2. NEXIUM [Suspect]
     Indication: BARRETT^S OESOPHAGUS
     Route: 048
     Dates: start: 2003
  3. GLUCOPHAGE [Concomitant]
  4. DIABETA [Concomitant]
  5. LISINOPRIL [Concomitant]
  6. PRAVACHOL [Concomitant]
  7. ICAPS [Concomitant]

REACTIONS (5)
  - Peripheral swelling [Unknown]
  - Parkinson^s disease [Unknown]
  - Anaemia [Unknown]
  - Hypokinesia [Unknown]
  - Diabetes mellitus [Unknown]
